FAERS Safety Report 15408845 (Version 1)
Quarter: 2018Q3

REPORT INFORMATION
  Report Type: Report from Study
  Country: CO (occurrence: CO)
  Receive Date: 20180920
  Receipt Date: 20180920
  Transmission Date: 20181010
  Serious: Yes (Other)
  Sender: FDA-Public Use
  Company Number: CO-JNJFOC-20180916413

PATIENT
  Age: 52 Year
  Sex: Female
  Weight: 64 kg

DRUGS (1)
  1. SIMPONI [Suspect]
     Active Substance: GOLIMUMAB
     Indication: ANKYLOSING SPONDYLITIS
     Route: 058
     Dates: start: 20170808

REACTIONS (2)
  - Influenza [Unknown]
  - Injection site cellulitis [Recovering/Resolving]

NARRATIVE: CASE EVENT DATE: 2018
